FAERS Safety Report 4552495-0 (Version None)
Quarter: 2005Q1

REPORT INFORMATION
  Report Type: 
  Country: None (occurrence: None)
  Receive Date: 20050112
  Receipt Date: 20050112
  Transmission Date: 20050727
  Serious: No
  Sender: FDA-Public Use
  Company Number: None

PATIENT
  Age: 61 Year
  Sex: Male

DRUGS (7)
  1. METOLAZONE [Suspect]
     Indication: FLUID RETENTION
     Dosage: 1 OR 2 DAILY
     Dates: start: 20041221, end: 20041229
  2. ZYRTEC-D 12 HOUR [Concomitant]
  3. LASIX [Concomitant]
  4. ALLOPURINOL [Concomitant]
  5. ADVAIR DISKUS 100/50 [Concomitant]
  6. KLOR-COM [Concomitant]
  7. MAGNESIUM [Concomitant]

REACTIONS (4)
  - DYSPNOEA [None]
  - FLUID RETENTION [None]
  - PHARMACEUTICAL PRODUCT COMPLAINT [None]
  - WEIGHT INCREASED [None]
